FAERS Safety Report 8605000-3 (Version None)
Quarter: 2012Q3

REPORT INFORMATION
  Report Type: 
  Country: None (occurrence: None)
  Receive Date: 20120808
  Receipt Date: 20120808
  Transmission Date: 20120928
  Serious: No
  Sender: FDA-Public Use
  Company Number: None

PATIENT
  Age: 51 Year
  Sex: Female
  Weight: 65 kg

DRUGS (1)
  1. NATURAL WHITE SENSITIVE WHITENING FLURIDE TOOTH. [Suspect]
     Dosage: DID NOT USE WHEN SAW BUG

REACTIONS (1)
  - PRODUCT CONTAMINATION MICROBIAL [None]
